FAERS Safety Report 12799900 (Version 3)
Quarter: 2016Q4

REPORT INFORMATION
  Report Type: Spontaneous
  Country: LV (occurrence: LV)
  Receive Date: 20160930
  Receipt Date: 20161007
  Transmission Date: 20170207
  Serious: Yes (Other)
  Sender: FDA-Public Use
  Company Number: LV-APOTEX-2016AP012634

PATIENT
  Age: 60 Year
  Sex: Female

DRUGS (8)
  1. MEBHYDROLIN [Suspect]
     Active Substance: MEBHYDROLIN
     Indication: PRODUCT USED FOR UNKNOWN INDICATION
     Dosage: 4 MG, QD
     Route: 065
  2. NEIROMIDIN [Suspect]
     Active Substance: IPIDACRINE
     Indication: PRODUCT USED FOR UNKNOWN INDICATION
     Dosage: 20 MG, BID
     Route: 065
  3. PAXIL [Suspect]
     Active Substance: PAROXETINE HYDROCHLORIDE
     Indication: PRODUCT USED FOR UNKNOWN INDICATION
     Dosage: UNK
     Route: 065
  4. IBUPROFEN. [Suspect]
     Active Substance: IBUPROFEN
     Indication: PRODUCT USED FOR UNKNOWN INDICATION
     Dosage: 400 MG, TID
     Route: 065
  5. ZOLPIDEM [Suspect]
     Active Substance: ZOLPIDEM\ZOLPIDEM TARTRATE
     Indication: PRODUCT USED FOR UNKNOWN INDICATION
     Dosage: 10 MG, UNK
     Route: 065
  6. MELDONIUM [Suspect]
     Active Substance: MELDONIUM
     Indication: PRODUCT USED FOR UNKNOWN INDICATION
     Dosage: 250 MG, BID
     Route: 065
  7. MELOXICAM. [Suspect]
     Active Substance: MELOXICAM
     Indication: PRODUCT USED FOR UNKNOWN INDICATION
     Dosage: 1.5 ML, QD
     Route: 065
  8. VIGANTOL /00318501/ [Suspect]
     Active Substance: CHOLECALCIFEROL
     Indication: PRODUCT USED FOR UNKNOWN INDICATION
     Route: 065

REACTIONS (12)
  - Hepatic failure [Unknown]
  - Cholelithiasis [None]
  - Hepatitis toxic [Unknown]
  - Pain in extremity [None]
  - Jaundice [Unknown]
  - Palmar erythema [None]
  - Rash [Unknown]
  - Polyneuropathy [None]
  - Hyperbilirubinaemia [Unknown]
  - Oedema peripheral [Unknown]
  - Coagulopathy [Unknown]
  - Dry mouth [None]
